FAERS Safety Report 6176054-1 (Version None)
Quarter: 2009Q2

REPORT INFORMATION
  Report Type: 
  Country: None (occurrence: None)
  Receive Date: 20090501
  Receipt Date: 20090422
  Transmission Date: 20091009
  Serious: Yes (Other)
  Sender: FDA-Public Use
  Company Number: DE-NOVOPROD-286324

PATIENT
  Sex: Female
  Weight: 117 kg

DRUGS (4)
  1. NOVORAPID [Suspect]
     Indication: TYPE 1 DIABETES MELLITUS
     Dosage: 40-50 IE DAILY
     Route: 058
     Dates: start: 20040101
  2. PROTAPHANE [Concomitant]
     Indication: TYPE 1 DIABETES MELLITUS
     Dosage: 39 IE, QD
     Route: 058
     Dates: start: 20040101
  3. LEVEMIR [Concomitant]
     Indication: TYPE 1 DIABETES MELLITUS
     Dosage: 9 IE, QD
     Route: 058
     Dates: start: 20070101
  4. LEVEMIR [Concomitant]

REACTIONS (4)
  - INJECTION SITE DISCOLOURATION [None]
  - INJECTION SITE INDURATION [None]
  - RASH [None]
  - SKIN REACTION [None]
